FAERS Safety Report 20339561 (Version 1)
Quarter: 2022Q1

REPORT INFORMATION
  Report Type: Spontaneous
  Country: ES (occurrence: ES)
  Receive Date: 20220117
  Receipt Date: 20220117
  Transmission Date: 20220423
  Serious: Yes (Death, Other)
  Sender: FDA-Public Use
  Company Number: ES-LUPIN PHARMACEUTICALS INC.-2022-00741

PATIENT
  Age: 49 Year
  Sex: Female

DRUGS (11)
  1. HYDROXYCHLOROQUINE [Suspect]
     Active Substance: HYDROXYCHLOROQUINE
     Indication: Immune thrombocytopenia
     Dosage: UNK
     Route: 065
  2. OSELTAMIVIR [Suspect]
     Active Substance: OSELTAMIVIR
     Indication: Immune thrombocytopenia
     Dosage: UNK
     Route: 065
  3. TACROLIMUS [Suspect]
     Active Substance: TACROLIMUS
     Indication: Immune thrombocytopenia
     Dosage: UNK
     Route: 065
  4. MYCOPHENOLATE MOFETIL [Suspect]
     Active Substance: MYCOPHENOLATE MOFETIL
     Indication: Immune thrombocytopenia
     Dosage: UNK
     Route: 065
  5. IMMUNE GLOBULIN NOS [Suspect]
     Active Substance: IMMUNE GLOBULIN NOS
     Indication: Immune thrombocytopenia
     Dosage: UNK
     Route: 042
  6. AZATHIOPRINE [Suspect]
     Active Substance: AZATHIOPRINE
     Indication: Immune thrombocytopenia
     Dosage: UNK
     Route: 065
  7. RITUXIMAB [Suspect]
     Active Substance: RITUXIMAB
     Indication: Immune thrombocytopenia
     Dosage: UNK
     Route: 065
  8. CYCLOPHOSPHAMIDE [Suspect]
     Active Substance: CYCLOPHOSPHAMIDE
     Indication: Immune thrombocytopenia
     Dosage: UNK
     Route: 065
  9. ROMIPLOSTIM [Suspect]
     Active Substance: ROMIPLOSTIM
     Indication: Immune thrombocytopenia
     Dosage: UNK
     Route: 065
  10. ELTROMBOPAG [Suspect]
     Active Substance: ELTROMBOPAG
     Indication: Immune thrombocytopenia
     Dosage: UNK
     Route: 065
  11. VINCRISTINE [Suspect]
     Active Substance: VINCRISTINE
     Indication: Immune thrombocytopenia
     Dosage: UNK
     Route: 065

REACTIONS (2)
  - Drug ineffective [Fatal]
  - Haemorrhage intracranial [Fatal]
